FAERS Safety Report 5871241-1 (Version None)
Quarter: 2008Q3

REPORT INFORMATION
  Report Type: 
  Country: None (occurrence: None)
  Receive Date: 20080903
  Receipt Date: 20080903
  Transmission Date: 20090109
  Serious: Yes (Hospitalization)
  Sender: FDA-Public Use
  Company Number: None

PATIENT
  Age: 68 Year
  Sex: Male
  Weight: 79.3795 kg

DRUGS (1)
  1. DIGITEK 0.25 MG PRESCRIPTION SOLUTIONS/BERTEK [Suspect]
     Indication: ATRIAL FLUTTER
     Dosage: 1 TABLET DAILY PO
     Route: 048
     Dates: start: 20030101, end: 20080718

REACTIONS (5)
  - CHEST PAIN [None]
  - DIZZINESS [None]
  - HYPERHIDROSIS [None]
  - NAUSEA [None]
  - THERAPEUTIC AGENT TOXICITY [None]
